FAERS Safety Report 17636628 (Version 3)
Quarter: 2020Q2

REPORT INFORMATION
  Report Type: Spontaneous
  Country: US (occurrence: US)
  Receive Date: 20200407
  Receipt Date: 20200429
  Transmission Date: 20200713
  Serious: No
  Sender: FDA-Public Use
  Company Number: US-PFIZER INC-2019348085

PATIENT
  Age: 70 Year
  Sex: Female
  Weight: 74.84 kg

DRUGS (3)
  1. MENEST [Suspect]
     Active Substance: ESTROGENS, ESTERIFIED
     Indication: MENOPAUSAL SYMPTOMS
     Dosage: 0.625 MG, 1X/DAY
     Route: 048
  2. MENEST [Suspect]
     Active Substance: ESTROGENS, ESTERIFIED
     Indication: MENOPAUSAL SYMPTOMS
  3. MENEST [Suspect]
     Active Substance: ESTROGENS, ESTERIFIED
     Indication: NAUSEA
     Dosage: 0.625 MG, 1X/DAY
     Route: 048
     Dates: end: 202002

REACTIONS (2)
  - Intentional product misuse [Unknown]
  - Headache [Unknown]
